FAERS Safety Report 4409442-1 (Version None)
Quarter: 2004Q3

REPORT INFORMATION
  Report Type: 
  Country: None (occurrence: None)
  Receive Date: 20040722
  Receipt Date: 20040709
  Transmission Date: 20050211
  Serious: Yes (Hospitalization, Other)
  Sender: FDA-Public Use
  Company Number: HQWYE044113JUL04

PATIENT
  Age: 38 Year
  Sex: Female

DRUGS (3)
  1. PREMPRO [Suspect]
     Dosage: 0.625MG/2.5MG DAILY, ORAL
     Route: 048
     Dates: start: 19780101, end: 19980101
  2. LASIX [Concomitant]
  3. LOPRESSOR [Concomitant]

REACTIONS (28)
  - ABNORMAL FAECES [None]
  - BONE DISORDER [None]
  - BRAIN MASS [None]
  - BREAST FIBROSIS [None]
  - CARDIAC ARREST [None]
  - CONVULSION [None]
  - FAECAL INCONTINENCE [None]
  - FIBROMYALGIA [None]
  - FORMICATION [None]
  - GROIN PAIN [None]
  - HAEMATOCHEZIA [None]
  - HYPERTROPHY BREAST [None]
  - LARYNGEAL CANCER [None]
  - MALIGNANT MELANOMA [None]
  - MOOD SWINGS [None]
  - MYOCARDIAL INFARCTION [None]
  - NECK MASS [None]
  - NEOPLASM [None]
  - PAIN [None]
  - PRURITUS [None]
  - RED BLOOD CELL SEDIMENTATION RATE INCREASED [None]
  - RENAL PAIN [None]
  - THROAT CANCER [None]
  - URINARY INCONTINENCE [None]
  - URINARY RETENTION [None]
  - UTERINE CERVIX HYPERTROPHY [None]
  - VOMITING [None]
  - WEIGHT INCREASED [None]
